FAERS Safety Report 9120333 (Version 1)
Quarter: 2013Q1

REPORT INFORMATION
  Report Type: Report from Study
  Country: CA (occurrence: CA)
  Receive Date: 20130226
  Receipt Date: 20130226
  Transmission Date: 20140127
  Serious: Yes (Hospitalization)
  Sender: FDA-Public Use
  Company Number: CA-JNJFOC-20130211422

PATIENT
  Sex: Female
  Weight: 99.79 kg

DRUGS (2)
  1. STELARA [Suspect]
     Indication: PSORIASIS
     Dates: start: 20130218
  2. STELARA [Suspect]
     Indication: PSORIASIS
     Dates: end: 201212

REACTIONS (1)
  - Mandibular prosthesis user [Unknown]
